FAERS Safety Report 5367993-X (Version None)
Quarter: 2007Q2

REPORT INFORMATION
  Report Type: 
  Country: None (occurrence: None)
  Receive Date: 20070622
  Receipt Date: 20070612
  Transmission Date: 20071010
  Serious: Yes (Hospitalization, Disabling)
  Sender: FDA-Public Use
  Company Number: NL-AMGEN-US230476

PATIENT
  Sex: Female

DRUGS (1)
  1. ENBREL [Suspect]
     Indication: RHEUMATOID ARTHRITIS
     Dosage: UNKNOWN
     Dates: start: 20051001, end: 20060101

REACTIONS (4)
  - BEDRIDDEN [None]
  - DIPLEGIA [None]
  - DYSSTASIA [None]
  - OEDEMA PERIPHERAL [None]
